FAERS Safety Report 4326319-0 (Version None)
Quarter: 2004Q1

REPORT INFORMATION
  Report Type: 
  Country: None (occurrence: None)
  Receive Date: 20040323
  Receipt Date: 20040308
  Transmission Date: 20041129
  Serious: Yes (Hospitalization, Other)
  Sender: FDA-Public Use
  Company Number: 04-074-0768

PATIENT
  Age: 65 Year
  Sex: Female
  Weight: 124 kg

DRUGS (1)
  1. DAUNORUBICIN HCL [Suspect]
     Indication: ACUTE MYELOID LEUKAEMIA
     Dosage: 45MG/M2 IV DAYS 1,3
     Dates: start: 20040122

REACTIONS (5)
  - ALKALOSIS [None]
  - HYPOCALCAEMIA [None]
  - HYPOKALAEMIA [None]
  - HYPOXIA [None]
  - SINUS BRADYCARDIA [None]
